FAERS Safety Report 8141056-2 (Version None)
Quarter: 2012Q1

REPORT INFORMATION
  Report Type: 
  Country: None (occurrence: None)
  Receive Date: 20120103
  Receipt Date: 20111028
  Transmission Date: 20120608
  Serious: No
  Sender: FDA-Public Use
  Company Number: AE-2011-002281

PATIENT
  Age: 60 Year
  Sex: Female
  Weight: 58.0604 kg

DRUGS (16)
  1. LISINOPRIL [Concomitant]
  2. AMBIEN [Concomitant]
  3. GLUCOSAMINE/CHONDROITIN (GLUCOSAMINE W/CHONDROITIN) [Concomitant]
  4. MIRALAX [Concomitant]
  5. INCIVEK [Suspect]
     Dosage: 2250 MG (750 MG, 3 IN 1 D),ORAL
     Route: 048
     Dates: start: 20111007
  6. MUCINEX [Concomitant]
  7. WELLBUTRIN [Concomitant]
  8. ZOLPIDEM [Concomitant]
  9. DOCUSATE (DOCUSATE) [Concomitant]
  10. PEGASYS [Concomitant]
  11. MULTIVITAMIN [Concomitant]
  12. RIBAVIRIN [Concomitant]
  13. POLIDOCANOL (POLIDOCANOL) [Concomitant]
  14. CYCLOBENZAPRINE [Concomitant]
  15. HYDROCODONE BITARTRATE [Concomitant]
  16. AMITRIPTYLINE HCL [Concomitant]

REACTIONS (2)
  - EYE IRRITATION [None]
  - BURNING SENSATION [None]
